FAERS Safety Report 20109819 (Version 1)
Quarter: 2021Q4

REPORT INFORMATION
  Report Type: Spontaneous
  Country: IE (occurrence: IE)
  Receive Date: 20211124
  Receipt Date: 20211124
  Transmission Date: 20220303
  Serious: Yes (Other)
  Sender: FDA-Public Use
  Company Number: None

PATIENT
  Age: 90 Year
  Sex: Female

DRUGS (3)
  1. OXYCONTIN [Suspect]
     Active Substance: OXYCODONE HYDROCHLORIDE
     Indication: Fall
     Dosage: 5 MG, Q12H (5MG BD)
     Route: 048
     Dates: start: 20210328, end: 20210329
  2. ZOPICLONE [Suspect]
     Active Substance: ZOPICLONE
     Indication: Product used for unknown indication
     Dosage: UNK (CHARTER ZOPICLONE ON ADMISSION AND GIVEN 28/3 PM DUE TO PROVISION OF OLD MEDICATION LIST- NOT )
     Route: 048
     Dates: start: 20210328, end: 20210329
  3. ZOPICLONE [Concomitant]
     Active Substance: ZOPICLONE
     Route: 048
     Dates: end: 202005

REACTIONS (2)
  - Coma scale abnormal [Unknown]
  - Miosis [Unknown]

NARRATIVE: CASE EVENT DATE: 20210329
